FAERS Safety Report 8178169 (Version 4)
Quarter: 2014Q1

REPORT INFORMATION
  Report Type: Spontaneous
  Country: US (occurrence: US)
  Receive Date: 20111012
  Receipt Date: 20140328
  Transmission Date: 20141002
  Serious: Yes (Hospitalization, Other)
  Sender: FDA-Public Use
  Company Number: US-ROCHE-1001662

PATIENT
  Age: 48 Year
  Sex: Female
  Weight: 68.55 kg

DRUGS (2)
  1. ACCUTANE [Suspect]
     Indication: ACNE
     Route: 048
     Dates: start: 19960117, end: 199607
  2. ACCUTANE [Suspect]
     Route: 048
     Dates: start: 1997, end: 1998

REACTIONS (10)
  - Colitis ulcerative [Unknown]
  - Inflammatory bowel disease [Unknown]
  - Haemorrhoidal haemorrhage [Unknown]
  - Anxiety [Unknown]
  - Emotional distress [Unknown]
  - Depression [Unknown]
  - Blood cholesterol increased [Unknown]
  - Blood triglycerides increased [Unknown]
  - Irritable bowel syndrome [Unknown]
  - Lip dry [Unknown]
